FAERS Safety Report 7935010-0 (Version None)
Quarter: 2011Q4

REPORT INFORMATION
  Report Type: 
  Country: None (occurrence: None)
  Receive Date: 20111122
  Receipt Date: 20111116
  Transmission Date: 20120403
  Serious: Yes (Other)
  Sender: FDA-Public Use
  Company Number: GB-ABBOTT-11P-167-0874978-00

PATIENT
  Age: 21 Year
  Sex: Male

DRUGS (1)
  1. HUMIRA [Suspect]
     Indication: PSORIASIS
     Route: 058
     Dates: end: 20110901

REACTIONS (6)
  - WEIGHT DECREASED [None]
  - WOUND INFECTION [None]
  - ACNE CYSTIC [None]
  - PSORIASIS [None]
  - WEIGHT INCREASED [None]
  - INFECTED CYST [None]
